FAERS Safety Report 17974013 (Version 1)
Quarter: 2020Q3

REPORT INFORMATION
  Report Type: Spontaneous
  Country: US (occurrence: US)
  Receive Date: 20200702
  Receipt Date: 20200702
  Transmission Date: 20201103
  Serious: Yes (Hospitalization)
  Sender: FDA-Public Use
  Company Number: None

PATIENT
  Age: 64 Year
  Sex: Female
  Weight: 54.4 kg

DRUGS (1)
  1. MK?3475 (PEMBROLIZUMAB) [Suspect]
     Active Substance: PEMBROLIZUMAB
     Dates: end: 20200527

REACTIONS (3)
  - Disease progression [None]
  - Metastases to central nervous system [None]
  - Lung squamous cell carcinoma stage IV [None]

NARRATIVE: CASE EVENT DATE: 20200530
